FAERS Safety Report 10031470 (Version 2)
Quarter: 2014Q1

REPORT INFORMATION
  Report Type: Not Available
  Country: AU (occurrence: AU)
  Receive Date: 20140324
  Receipt Date: 20140324
  Transmission Date: 20141002
  Serious: Yes (Disabling)
  Sender: FDA-Public Use
  Company Number: AU-ASTELLAS-2014JP002099

PATIENT
  Age: 58 Year
  Sex: Female

DRUGS (1)
  1. SOLIFENACIN [Suspect]
     Dosage: 5 MG, UID/QD
     Route: 048
     Dates: start: 20131028, end: 20131112

REACTIONS (4)
  - Chest discomfort [Not Recovered/Not Resolved]
  - Hypoaesthesia [Not Recovered/Not Resolved]
  - Pain in extremity [Not Recovered/Not Resolved]
  - Paraesthesia [Not Recovered/Not Resolved]
